FAERS Safety Report 8583133-8 (Version None)
Quarter: 2012Q3

REPORT INFORMATION
  Report Type: 
  Country: None (occurrence: None)
  Receive Date: 20120809
  Receipt Date: 20120731
  Transmission Date: 20120928
  Serious: Yes (Hospitalization, Other)
  Sender: FDA-Public Use
  Company Number: JP-VERTEX PHARMACEUTICALS INC.-AE-2012-004842

PATIENT
  Age: 65 Year
  Sex: Male

DRUGS (14)
  1. REBETOL [Concomitant]
     Route: 048
     Dates: start: 20120328, end: 20120328
  2. LECICARBON [Concomitant]
     Route: 054
     Dates: start: 20120404, end: 20120404
  3. BARACLUDE [Concomitant]
     Route: 048
     Dates: start: 20120403, end: 20120604
  4. TELAVIC [Suspect]
     Route: 048
     Dates: start: 20120327, end: 20120327
  5. FAMOTIDINE [Concomitant]
     Route: 048
     Dates: start: 20120202, end: 20120618
  6. REBETOL [Concomitant]
     Route: 048
     Dates: start: 20120327, end: 20120327
  7. PEG-INTRON [Concomitant]
     Route: 058
     Dates: start: 20120410, end: 20120410
  8. REBETOL [Concomitant]
     Indication: HEPATITIS C
     Route: 048
     Dates: start: 20120124, end: 20120326
  9. PEG-INTRON [Concomitant]
     Indication: HEPATITIS C
     Route: 058
     Dates: start: 20120124, end: 20120327
  10. REBETOL [Concomitant]
     Route: 048
     Dates: start: 20120410, end: 20120413
  11. URSO 250 [Concomitant]
     Route: 048
     Dates: start: 20120529
  12. TELAVIC [Suspect]
     Indication: HEPATITIS C
     Route: 048
     Dates: start: 20120124, end: 20120201
  13. TELAVIC [Suspect]
     Route: 048
     Dates: start: 20120202, end: 20120202
  14. TELAVIC [Suspect]
     Route: 048
     Dates: start: 20120203, end: 20120326

REACTIONS (10)
  - ERYTHEMA MULTIFORME [None]
  - WHITE BLOOD CELL COUNT INCREASED [None]
  - XERODERMA [None]
  - STEVENS-JOHNSON SYNDROME [None]
  - DIARRHOEA [None]
  - LISTLESS [None]
  - HAEMOGLOBIN DECREASED [None]
  - ERYTHEMA [None]
  - DRUG RASH WITH EOSINOPHILIA AND SYSTEMIC SYMPTOMS [None]
  - DEPRESSIVE SYMPTOM [None]
